FAERS Safety Report 16060817 (Version 1)
Quarter: 2019Q1

REPORT INFORMATION
  Report Type: Spontaneous
  Country: US (occurrence: US)
  Receive Date: 20190312
  Receipt Date: 20190312
  Transmission Date: 20190418
  Serious: Yes (Hospitalization, Other)
  Sender: FDA-Public Use
  Company Number: US-CIPLA LTD.-2019US01309

PATIENT

DRUGS (3)
  1. GABAPENTIN. [Suspect]
     Active Substance: GABAPENTIN
     Indication: BACK DISORDER
     Dosage: 2 DOSAGE FORM, BID, 300 MG IN THE AFTERNOON AND 2 CAPSULES AT BED TIME
     Route: 048
     Dates: start: 201809
  2. METOPROLOL. [Concomitant]
     Active Substance: METOPROLOL
     Indication: HYPOTENSION
     Dosage: 100 MILLIGRAM, ONE AND HALF TABLET A DAY
     Route: 065
     Dates: start: 201810
  3. HYDRALAZINE [Concomitant]
     Active Substance: HYDRALAZINE HYDROCHLORIDE
     Indication: HYPOTENSION
     Dosage: 50 MILLIGRAM, BID
     Route: 065
     Dates: start: 201810

REACTIONS (7)
  - Peripheral swelling [Unknown]
  - Contusion [Unknown]
  - Viral infection [Unknown]
  - Rash generalised [Unknown]
  - Dyspnoea [Unknown]
  - Rash pruritic [Unknown]
  - Pulmonary oedema [Unknown]

NARRATIVE: CASE EVENT DATE: 2018
